FAERS Safety Report 12320107 (Version 1)
Quarter: 2016Q2

REPORT INFORMATION
  Report Type: Other
  Country: US (occurrence: US)
  Receive Date: 20160430
  Receipt Date: 20160430
  Transmission Date: 20160815
  Serious: Yes (Other)
  Sender: FDA-Public Use
  Company Number: US-GUTHY-RENKER LLC-1051240

PATIENT
  Age: 33 Year
  Sex: Female

DRUGS (1)
  1. IT COSMETICS BYE BYE FOUNDATION SPF 50+ [Suspect]
     Active Substance: TITANIUM DIOXIDE\ZINC OXIDE
     Indication: THERAPEUTIC SKIN CARE TOPICAL
     Route: 061
     Dates: start: 20160215, end: 20160219

REACTIONS (5)
  - Skin test positive [None]
  - Swelling face [None]
  - Hypersensitivity [Not Recovered/Not Resolved]
  - Paraesthesia [None]
  - Infection [None]

NARRATIVE: CASE EVENT DATE: 20160217
